FAERS Safety Report 5032619-1 (Version None)
Quarter: 2006Q2

REPORT INFORMATION
  Report Type: 
  Country: None (occurrence: None)
  Receive Date: 20060622
  Receipt Date: 20060317
  Transmission Date: 20061013
  Serious: Yes (Life-Threatening, Hospitalization)
  Sender: FDA-Public Use
  Company Number: PHRM2006FR01096

PATIENT
  Age: 55 Year
  Sex: Female

DRUGS (5)
  1. NOVATREX [Suspect]
     Indication: RHEUMATOID ARTHRITIS
     Dosage: 12.5 MG/WEEK
     Route: 048
     Dates: start: 20020215, end: 20050801
  2. VOLTARENE LP [Suspect]
     Indication: RHEUMATOID ARTHRITIS
     Dosage: 150 MG/DAY FOR 5 DAYS AS NEEDED
     Route: 048
     Dates: start: 20021014, end: 20051216
  3. DAFALGAN [Suspect]
     Indication: RHEUMATOID ARTHRITIS
     Dosage: 1 G/DAY
     Route: 048
     Dates: end: 20060301
  4. STILNOX [Concomitant]
     Indication: ANXIETY
     Dosage: 5 MG, QD
     Route: 048
  5. MOPRAL [Suspect]
     Dosage: 20 MG/DAY AS NEEDED
     Route: 048
     Dates: start: 20011001, end: 20051201

REACTIONS (6)
  - BONE MARROW FAILURE [None]
  - HAEMOGLOBIN DECREASED [None]
  - NEUTROPHIL COUNT DECREASED [None]
  - NON-HODGKIN'S LYMPHOMA [None]
  - PANCYTOPENIA [None]
  - PLATELET COUNT DECREASED [None]
